FAERS Safety Report 11131457 (Version 2)
Quarter: 2015Q2

REPORT INFORMATION
  Report Type: Spontaneous
  Country: JP (occurrence: JP)
  Receive Date: 20150522
  Receipt Date: 20150612
  Transmission Date: 20150821
  Serious: Yes (Other)
  Sender: FDA-Public Use
  Company Number: JP-DSJP-DSE-2015-115927

PATIENT

DRUGS (3)
  1. CARTARETIN [Concomitant]
     Active Substance: CALCIUM CARBONATE
     Indication: PRODUCT USED FOR UNKNOWN INDICATION
  2. EVISTA [Suspect]
     Active Substance: RALOXIFENE HYDROCHLORIDE
     Indication: OSTEOPOROSIS
     Dosage: 60 MG, QD
     Route: 048
     Dates: start: 20150509, end: 20150510
  3. OLMETEC TABLETS 5MG [Suspect]
     Active Substance: OLMESARTAN MEDOXOMIL
     Indication: HYPERTENSION
     Dosage: 2.5 MG, QD
     Route: 048

REACTIONS (3)
  - Blood pressure increased [Unknown]
  - Drug administration error [Unknown]
  - Underdose [Unknown]

NARRATIVE: CASE EVENT DATE: 20150510
